FAERS Safety Report 6668266-5 (Version None)
Quarter: 2010Q2

REPORT INFORMATION
  Report Type: 
  Country: None (occurrence: None)
  Receive Date: 20100405
  Receipt Date: 20100405
  Transmission Date: 20101027
  Serious: Yes (Other)
  Sender: FDA-Public Use
  Company Number: None

PATIENT
  Sex: Male
  Weight: 24.8 kg

DRUGS (2)
  1. SIROLIMUS [Suspect]
     Indication: NEUROFIBROMATOSIS
     Dosage: 1.0 MG BID ORAL
     Route: 048
     Dates: start: 20100126, end: 20100203
  2. TYLENOL FOR FEVER [Concomitant]

REACTIONS (2)
  - LOW DENSITY LIPOPROTEIN INCREASED [None]
  - PNEUMONITIS [None]
